FAERS Safety Report 7523759-3 (Version None)
Quarter: 2011Q2

REPORT INFORMATION
  Report Type: 
  Country: None (occurrence: None)
  Receive Date: 20110603
  Receipt Date: 20110519
  Transmission Date: 20111010
  Serious: Yes (Other)
  Sender: FDA-Public Use
  Company Number: ES-WATSON-2011-07537

PATIENT
  Age: 38 Month
  Sex: Female

DRUGS (3)
  1. ALBUTEROL SULFATE [Suspect]
     Indication: ASTHMA
     Dosage: NEBULIZED CONTINUOUSLY
  2. METHYLPREDNISOLONE ACETATE [Suspect]
     Indication: ASTHMA
     Dosage: 102 MG/KG/6 H
  3. IPRATROPIUM BROMIDE (UNKNOWN) [Suspect]
     Indication: ASTHMA
     Dosage: EVERY 2 HOURS

REACTIONS (2)
  - RESPIRATORY DISTRESS [None]
  - DRUG INEFFECTIVE [None]
